FAERS Safety Report 4852065-0 (Version None)
Quarter: 2005Q4

REPORT INFORMATION
  Report Type: 
  Country: None (occurrence: None)
  Receive Date: 20051123
  Receipt Date: 20050810
  Transmission Date: 20060501
  Serious: No
  Sender: FDA-Public Use
  Company Number: 215431

PATIENT
  Age: 57 Year
  Sex: Male
  Weight: 85 kg

DRUGS (5)
  1. RAPTIVA [Suspect]
     Indication: PSORIASIS
     Dosage: .85MG, 1/WEEK, SUBCUTANEOUS
     Route: 058
     Dates: start: 20050415, end: 20050629
  2. SORIATANE [Concomitant]
  3. PUVA (PHOTOTHERAPY, PSORALEN) [Concomitant]
  4. ENBREL [Concomitant]
  5. AMEVIVE [Concomitant]

REACTIONS (4)
  - EOSINOPHILIA [None]
  - LYMPHADENOPATHY [None]
  - PLATELET COUNT DECREASED [None]
  - SIALOADENITIS [None]
